FAERS Safety Report 18971564 (Version 3)
Quarter: 2021Q3

REPORT INFORMATION
  Report Type: Spontaneous
  Country: FR (occurrence: FR)
  Receive Date: 20210304
  Receipt Date: 20210701
  Transmission Date: 20211014
  Serious: Yes (Life-Threatening, Hospitalization, Other)
  Sender: FDA-Public Use
  Company Number: FR-AUROBINDO-AUR-APL-2021-008735

PATIENT
  Age: 67 Year
  Sex: Male
  Weight: 67 kg

DRUGS (4)
  1. CAPMATINIB [Suspect]
     Active Substance: CAPMATINIB
     Indication: NON-SMALL CELL LUNG CANCER
     Dosage: 200 MILLIGRAM
     Route: 065
  2. METFORMIN [Suspect]
     Active Substance: METFORMIN HYDROCHLORIDE
     Indication: DIABETES MELLITUS
     Dosage: UNK
     Route: 065
  3. METFORMIN [Suspect]
     Active Substance: METFORMIN HYDROCHLORIDE
     Indication: METASTASES TO LUNG
  4. CAPMATINIB [Suspect]
     Active Substance: CAPMATINIB
     Dosage: 800 MILLIGRAM, ONCE A DAY
     Route: 048
     Dates: start: 20200911, end: 20200924

REACTIONS (8)
  - Overdose [Unknown]
  - Acute kidney injury [Not Recovered/Not Resolved]
  - Malignant neoplasm progression [Unknown]
  - Metastases to lung [Unknown]
  - Ketoacidosis [Unknown]
  - Lactic acidosis [Recovered/Resolved]
  - Non-small cell lung cancer [Unknown]
  - Drug interaction [Unknown]

NARRATIVE: CASE EVENT DATE: 20200924
